FAERS Safety Report 10210012 (Version 1)
Quarter: 2014Q2

REPORT INFORMATION
  Report Type: Report from Study
  Country: CA (occurrence: CA)
  Receive Date: 20140602
  Receipt Date: 20140602
  Transmission Date: 20141212
  Serious: Yes (Other)
  Sender: FDA-Public Use
  Company Number: CA-JNJFOC-20140516972

PATIENT
  Sex: Female
  Weight: 67 kg

DRUGS (1)
  1. REMICADE [Suspect]
     Indication: CROHN^S DISEASE
     Dosage: FOR 52 WEEKS.
     Route: 042
     Dates: start: 20110419

REACTIONS (2)
  - Basal cell carcinoma [Unknown]
  - Thyroid neoplasm [Unknown]
